FAERS Safety Report 16507771 (Version 1)
Quarter: 2019Q3

REPORT INFORMATION
  Report Type: Spontaneous
  Country: US (occurrence: US)
  Receive Date: 20190702
  Receipt Date: 20190702
  Transmission Date: 20191004
  Serious: No
  Sender: FDA-Public Use
  Company Number: US-ELI_LILLY_AND_COMPANY-US201906002041

PATIENT
  Sex: Female

DRUGS (1)
  1. TRULICITY [Suspect]
     Active Substance: DULAGLUTIDE
     Indication: PRODUCT USED FOR UNKNOWN INDICATION
     Dosage: 1.5 MG, UNKNOWN
     Route: 065

REACTIONS (7)
  - Injection site bruising [Recovered/Resolved]
  - Abdominal pain upper [Recovering/Resolving]
  - Impaired gastric emptying [Unknown]
  - Injection site mass [Not Recovered/Not Resolved]
  - Injection site scab [Not Recovered/Not Resolved]
  - Nausea [Recovering/Resolving]
  - Injection site urticaria [Unknown]

NARRATIVE: CASE EVENT DATE: 201903
